FAERS Safety Report 8306214-2 (Version None)
Quarter: 2012Q2

REPORT INFORMATION
  Report Type: 
  Country: None (occurrence: None)
  Receive Date: 20120423
  Receipt Date: 20120416
  Transmission Date: 20120825
  Serious: Yes (Other)
  Sender: FDA-Public Use
  Company Number: FR-ROCHE-1060196

PATIENT
  Sex: Male

DRUGS (2)
  1. MABTHERA [Suspect]
     Indication: B-CELL LYMPHOMA
     Route: 042
     Dates: start: 20030101, end: 20111216
  2. BENDAMUSTINE [Concomitant]

REACTIONS (3)
  - ACUTE RESPIRATORY FAILURE [None]
  - DYSPNOEA [None]
  - COUGH [None]
